FAERS Safety Report 23737659 (Version 1)
Quarter: 2024Q2

REPORT INFORMATION
  Report Type: Spontaneous
  Country: US (occurrence: None)
  Receive Date: 20240412
  Receipt Date: 20240412
  Transmission Date: 20240716
  Serious: Yes (Hospitalization)
  Sender: FDA-Public Use
  Company Number: None

PATIENT
  Age: 27 Year
  Sex: Male

DRUGS (5)
  1. GAMMAGARD LIQUID [Suspect]
     Active Substance: HUMAN IMMUNOGLOBULIN G
     Indication: Immunodeficiency common variable
     Dosage: OTHER STRENGTH : 20/200 GM M;?FREQUENCY : MONTHLY;?
     Route: 042
     Dates: start: 20240411
  2. GAMMAGARD LIQUID [Suspect]
     Active Substance: HUMAN IMMUNOGLOBULIN G
     Indication: Immunodeficiency common variable
     Dosage: OTHER STRENGTH : 10/100 GM/M;?FREQUENCY : MONTHLY;?
     Route: 042
     Dates: start: 20240411
  3. ARALAST NP INJ [Concomitant]
  4. EPINEPHRINE AUTO-INJ [Concomitant]
  5. SODIUM CHLORIDE [Concomitant]
     Active Substance: SODIUM CHLORIDE

REACTIONS (2)
  - Gallbladder disorder [None]
  - Therapy interrupted [None]

NARRATIVE: CASE EVENT DATE: 20240411
